FAERS Safety Report 13071700 (Version 2)
Quarter: 2017Q1

REPORT INFORMATION
  Report Type: Spontaneous
  Country: NL (occurrence: NL)
  Receive Date: 20161229
  Receipt Date: 20170119
  Transmission Date: 20170428
  Serious: Yes (Other)
  Sender: FDA-Public Use
  Company Number: NL-PFIZER INC-2016599701

PATIENT
  Age: 64 Year
  Sex: Female

DRUGS (9)
  1. VASOPRESSIN. [Concomitant]
     Active Substance: VASOPRESSIN
     Indication: VASOPLEGIA SYNDROME
     Dosage: UNK
  2. GRANISETRON /01178102/ [Concomitant]
     Active Substance: GRANISETRON
  3. ESKETAMINE [Suspect]
     Active Substance: ESKETAMINE
     Dosage: 25 MG, UNK
  4. METHYLTHIONINIUM CHLORIDE [Suspect]
     Active Substance: METHYLENE BLUE
     Indication: VASOPLEGIA SYNDROME
     Dosage: 2 MG/KG, DAILY
  5. CLONAZEPAM. [Concomitant]
     Active Substance: CLONAZEPAM
  6. DESFLURANE. [Concomitant]
     Active Substance: DESFLURANE
  7. PAROXETINE. [Suspect]
     Active Substance: PAROXETINE
     Dosage: UNK
  8. NOREPINEPHRINE BITARTRATE. [Concomitant]
     Active Substance: NOREPINEPHRINE BITARTRATE
     Dosage: UNK
  9. QUETIAPINE. [Suspect]
     Active Substance: QUETIAPINE

REACTIONS (1)
  - Serotonin syndrome [Recovered/Resolved]
